FAERS Safety Report 7975133-3 (Version None)
Quarter: 2011Q4

REPORT INFORMATION
  Report Type: 
  Country: None (occurrence: None)
  Receive Date: 20111213
  Receipt Date: 20111101
  Transmission Date: 20120403
  Serious: No
  Sender: FDA-Public Use
  Company Number: US-AMGEN-USASP2011057048

PATIENT
  Age: 64 Year
  Sex: Female

DRUGS (1)
  1. ENBREL [Suspect]
     Indication: RHEUMATOID ARTHRITIS
     Dosage: 50 MG, QWK
     Dates: start: 20090529, end: 20110901

REACTIONS (7)
  - OEDEMA PERIPHERAL [None]
  - BUNION [None]
  - PAIN IN EXTREMITY [None]
  - HYPERKERATOSIS [None]
  - TOOTH DISORDER [None]
  - TOOTHACHE [None]
  - INJECTION SITE PAIN [None]
